FAERS Safety Report 5501452-6 (Version None)
Quarter: 2007Q4

REPORT INFORMATION
  Report Type: 
  Country: None (occurrence: None)
  Receive Date: 20071030
  Receipt Date: 20071022
  Transmission Date: 20080405
  Serious: Yes (Other)
  Sender: FDA-Public Use
  Company Number: PHEH2007US13936

PATIENT

DRUGS (1)
  1. ZOMETA [Suspect]
     Dosage: UNK
     Route: 042

REACTIONS (5)
  - DENTAL FISTULA [None]
  - ENDODONTIC PROCEDURE [None]
  - INFECTION [None]
  - OSTEONECROSIS [None]
  - PAIN [None]
